FAERS Safety Report 5248397-7 (Version None)
Quarter: 2007Q1

REPORT INFORMATION
  Report Type: 
  Country: None (occurrence: None)
  Receive Date: 20070222
  Receipt Date: 20070202
  Transmission Date: 20070707
  Serious: Yes (Hospitalization)
  Sender: FDA-Public Use
  Company Number: ALK_0118_2007

PATIENT
  Age: 44 Year
  Sex: Male

DRUGS (1)
  1. VIVITROL [Suspect]
     Indication: ALCOHOLISM
     Dosage: 380 MG QM IM
     Route: 030
     Dates: start: 20061024

REACTIONS (3)
  - ALCOHOL POISONING [None]
  - ALCOHOLISM [None]
  - REFUSAL OF TREATMENT BY PATIENT [None]
